FAERS Safety Report 10412282 (Version 1)
Quarter: 2014Q2

REPORT INFORMATION
  Report Type: Spontaneous
  Country: US (occurrence: None)
  Receive Date: 20140604
  Receipt Date: 20140604
  Transmission Date: 20141212
  Serious: Yes (Hospitalization)
  Sender: FDA-Public Use
  Company Number: 20100901CINRY1598

PATIENT
  Age: 63 Year
  Sex: Female

DRUGS (2)
  1. CINRYZE [Suspect]
     Indication: HEREDITARY ANGIOEDEMA
     Dosage: (1000 UNIT, 2 IN 1 WK),INTRAVENOUS
     Route: 042
     Dates: start: 201004
  2. CINRYZE [Suspect]
     Indication: PROPHYLAXIS
     Dosage: (1000 UNIT, 2 IN 1 WK),INTRAVENOUS
     Route: 042
     Dates: start: 201004

REACTIONS (7)
  - Hereditary angioedema [None]
  - Abdominal distension [None]
  - Inappropriate schedule of drug administration [None]
  - Fatigue [None]
  - Stress [None]
  - Anxiety [None]
  - Angioedema [None]
